FAERS Safety Report 23343334 (Version 1)
Quarter: 2023Q4

REPORT INFORMATION
  Report Type: Spontaneous
  Country: US (occurrence: US)
  Receive Date: 20231227
  Receipt Date: 20231227
  Transmission Date: 20240109
  Serious: Yes (Death)
  Sender: FDA-Public Use
  Company Number: US-FMCRTG-FMC-2312-001478

PATIENT
  Age: 86 Year
  Sex: Male

DRUGS (1)
  1. PHOSLYRA [Suspect]
     Active Substance: CALCIUM ACETATE
     Indication: Chronic kidney disease
     Route: 048

REACTIONS (1)
  - Death [Fatal]

NARRATIVE: CASE EVENT DATE: 20230728
